FAERS Safety Report 5685136-X (Version None)
Quarter: 2008Q1

REPORT INFORMATION
  Report Type: 
  Country: None (occurrence: None)
  Receive Date: 20080328
  Receipt Date: 20080318
  Transmission Date: 20080703
  Serious: Yes (Hospitalization, Other)
  Sender: FDA-Public Use
  Company Number: TR-ABBOTT-08P-161-0443027-00

PATIENT
  Age: 38 Year
  Sex: Male

DRUGS (3)
  1. VALPROATE SODIUM [Suspect]
     Indication: BIPOLAR I DISORDER
  2. VALPROATE SODIUM [Suspect]
  3. OLANZAPINE [Concomitant]
     Indication: BIPOLAR I DISORDER

REACTIONS (2)
  - HAEMATOTOXICITY [None]
  - HEPATOTOXICITY [None]
